FAERS Safety Report 24651131 (Version 1)
Quarter: 2024Q4

REPORT INFORMATION
  Report Type: Spontaneous
  Country: PT (occurrence: PT)
  Receive Date: 20241122
  Receipt Date: 20241122
  Transmission Date: 20250115
  Serious: Yes (Other)
  Sender: AUROBINDO
  Company Number: PT-INFARMED-A202410-941

PATIENT
  Age: 7 Year
  Sex: Female

DRUGS (1)
  1. MONTELUKAST [Suspect]
     Active Substance: MONTELUKAST
     Indication: Asthma
     Dosage: 5 MILLIGRAM, ONCE A DAY(1 COMPRIMIDO ? NOITE)
     Route: 048
     Dates: start: 20230902, end: 20230911

REACTIONS (3)
  - Aphthous ulcer [Recovered/Resolved]
  - Lip oedema [Recovered/Resolved]
  - Noninfective gingivitis [Recovered/Resolved]

NARRATIVE: CASE EVENT DATE: 20230907
